FAERS Safety Report 12487737 (Version 1)
Quarter: 2016Q2

REPORT INFORMATION
  Report Type: Spontaneous
  Country: ES (occurrence: ES)
  Receive Date: 20160622
  Receipt Date: 20160622
  Transmission Date: 20160815
  Serious: Yes (Other)
  Sender: FDA-Public Use
  Company Number: ES-009507513-1606ESP005451

PATIENT
  Age: 27 Year
  Sex: Female

DRUGS (1)
  1. NUVARING [Suspect]
     Active Substance: ETHINYL ESTRADIOL\ETONOGESTREL
     Indication: CONTRACEPTION
     Dosage: UNK, STRENGTH: ETONOGESTREL 0.120/ 0.015 ETHINYLESTRADIOL)
     Route: 067
     Dates: end: 201605

REACTIONS (4)
  - Ectopic pregnancy [Recovering/Resolving]
  - Pregnancy on contraceptive [Recovering/Resolving]
  - Drug ineffective [Unknown]
  - Unintended pregnancy [Recovering/Resolving]

NARRATIVE: CASE EVENT DATE: 201605
